FAERS Safety Report 11953897 (Version 1)
Quarter: 2016Q1

REPORT INFORMATION
  Report Type: Spontaneous
  Country: RO (occurrence: RO)
  Receive Date: 20160126
  Receipt Date: 20160126
  Transmission Date: 20160526
  Serious: Yes (Death, Hospitalization)
  Sender: FDA-Public Use
  Company Number: RO-TAKEDA-2016MPI000440

PATIENT
  Age: 73 Year
  Sex: Male

DRUGS (1)
  1. VELCADE [Suspect]
     Active Substance: BORTEZOMIB
     Indication: PLASMA CELL MYELOMA
     Dosage: UNK
     Route: 065

REACTIONS (7)
  - Death [Fatal]
  - Malaise [Unknown]
  - Pleural effusion [Unknown]
  - Peripheral swelling [Unknown]
  - Hypophagia [Unknown]
  - Bedridden [Unknown]
  - Abdominal distension [Unknown]

NARRATIVE: CASE EVENT DATE: 201512
